FAERS Safety Report 7277939-5 (Version None)
Quarter: 2011Q1

REPORT INFORMATION
  Report Type: 
  Country: None (occurrence: None)
  Receive Date: 20110207
  Receipt Date: 20110127
  Transmission Date: 20110831
  Serious: Yes (Hospitalization)
  Sender: FDA-Public Use
  Company Number: CN-ROCHE-756106

PATIENT
  Sex: Female
  Weight: 54.5 kg

DRUGS (5)
  1. TRASTUZUMAB [Suspect]
     Dosage: LOADING DOSE, DOSAGE FORM: VIALS
     Route: 042
     Dates: start: 20100804
  2. TRASTUZUMAB [Suspect]
     Dosage: LAST DOSE PRIOR TO SAE: 26 JAN 2011, MAINTENANCE DOSE
     Route: 042
  3. DOCETAXEL [Suspect]
     Dosage: DOSE LEVEL: 60 MG/M2, DOSAGE FORM: VIALS, LAST DOSE PRIOR TO SAE: 22 NOV 2010
     Route: 042
     Dates: start: 20100804
  4. CARBOPLATIN [Suspect]
     Dosage: DOSE LEVEL: 5 AUC, DOSAGE FORM: VIALS, LAST DOSE PRIOR TO SAE:22 NOV 2010
     Route: 042
     Dates: start: 20100804
  5. BEVACIZUMAB [Suspect]
     Dosage: DOSAGE FORM: VIALS, TOTAL DOSE: 795 MG, LAST DOSE: 22 NOV 2010
     Route: 042
     Dates: start: 20100804

REACTIONS (1)
  - INTERVERTEBRAL DISC PROTRUSION [None]
